FAERS Safety Report 8623377-X (Version None)
Quarter: 2012Q3

REPORT INFORMATION
  Report Type: 
  Country: None (occurrence: None)
  Receive Date: 20120827
  Receipt Date: 20120822
  Transmission Date: 20120928
  Serious: Yes (Other)
  Sender: FDA-Public Use
  Company Number: IT-JNJFOC-20120811788

PATIENT
  Age: 31 Year
  Sex: Female

DRUGS (2)
  1. EN [Suspect]
     Indication: PRODUCT USED FOR UNKNOWN INDICATION
     Route: 048
     Dates: start: 20120822, end: 20120822
  2. TOPAMAX [Suspect]
     Indication: PRODUCT USED FOR UNKNOWN INDICATION
     Route: 048
     Dates: start: 20120822, end: 20120822

REACTIONS (3)
  - HYPOTENSION [None]
  - SLUGGISHNESS [None]
  - SELF INJURIOUS BEHAVIOUR [None]
